FAERS Safety Report 4479658-7 (Version None)
Quarter: 2004Q4

REPORT INFORMATION
  Report Type: 
  Country: None (occurrence: None)
  Receive Date: 20041018
  Receipt Date: 20040927
  Transmission Date: 20050328
  Serious: Yes (Hospitalization)
  Sender: FDA-Public Use
  Company Number: 2004AP05013

PATIENT
  Age: 51 Year
  Sex: Female

DRUGS (1)
  1. SYMBICORT TURBUHALER ^DRACO^ [Suspect]
     Indication: ASTHMA
     Dosage: 160/4.5 MG
     Dates: start: 20040409, end: 20040925

REACTIONS (3)
  - ABDOMINAL PAIN [None]
  - CANDIDIASIS [None]
  - GASTRITIS [None]
